FAERS Safety Report 18183406 (Version 1)
Quarter: 2020Q3

REPORT INFORMATION
  Report Type: Report from Study
  Country: CA (occurrence: CA)
  Receive Date: 20200822
  Receipt Date: 20200822
  Transmission Date: 20201103
  Serious: Yes (Other)
  Sender: FDA-Public Use
  Company Number: NVSC2019CA035877

PATIENT
  Age: 16 Year
  Sex: Male

DRUGS (9)
  1. ILARIS [Suspect]
     Active Substance: CANAKINUMAB
     Dosage: 280 MG, Q4W
     Route: 058
     Dates: start: 20200717
  2. KINERET [Concomitant]
     Active Substance: ANAKINRA
     Indication: PRODUCT USED FOR UNKNOWN INDICATION
     Dosage: UNK
     Route: 065
  3. CYCLOSPORINE. [Concomitant]
     Active Substance: CYCLOSPORINE
     Indication: PRODUCT USED FOR UNKNOWN INDICATION
     Dosage: 60 MG, BID
     Route: 065
     Dates: start: 201908
  4. ILARIS [Suspect]
     Active Substance: CANAKINUMAB
     Dosage: 280 OT, Q4W
     Route: 058
     Dates: start: 20200227
  5. ILARIS [Suspect]
     Active Substance: CANAKINUMAB
     Dosage: 280 OT, Q4W
     Route: 058
     Dates: start: 20200130
  6. PREDNISONE. [Concomitant]
     Active Substance: PREDNISONE
     Indication: PRODUCT USED FOR UNKNOWN INDICATION
     Dosage: UNK
     Route: 065
  7. ILARIS [Suspect]
     Active Substance: CANAKINUMAB
     Indication: STILL^S DISEASE
     Dosage: 280 MG, Q4W
     Route: 058
     Dates: start: 20191008
  8. METHOTREXATE. [Concomitant]
     Active Substance: METHOTREXATE
     Indication: PRODUCT USED FOR UNKNOWN INDICATION
     Dosage: UNK
     Route: 065
  9. ACTEMRA [Concomitant]
     Active Substance: TOCILIZUMAB
     Indication: PRODUCT USED FOR UNKNOWN INDICATION
     Dosage: UNK
     Route: 065

REACTIONS (7)
  - Hyperpyrexia [Recovered/Resolved]
  - Blood pressure abnormal [Unknown]
  - Blood lactic acid increased [Unknown]
  - Malaise [Unknown]
  - Aspartate aminotransferase increased [Unknown]
  - Acne [Unknown]
  - Viral infection [Unknown]

NARRATIVE: CASE EVENT DATE: 2019
